FAERS Safety Report 5071702-1 (Version None)
Quarter: 2006Q3

REPORT INFORMATION
  Report Type: 
  Country: None (occurrence: None)
  Receive Date: 20060804
  Receipt Date: 20060721
  Transmission Date: 20061208
  Serious: Yes (Other)
  Sender: FDA-Public Use
  Company Number: US-AMGEN-KDL187112

PATIENT
  Sex: Female

DRUGS (6)
  1. NEUPOGEN [Suspect]
     Indication: NEUTROPENIA
     Route: 065
     Dates: start: 20060101, end: 20060327
  2. PEGASYS [Suspect]
     Route: 058
     Dates: start: 20051114, end: 20060621
  3. COPEGUS [Suspect]
     Route: 048
     Dates: start: 20051114
  4. CITALOPRAM HYDROBROMIDE [Concomitant]
     Route: 065
  5. ATIVAN [Concomitant]
     Route: 065
  6. RESTORIL [Concomitant]
     Route: 065

REACTIONS (14)
  - ABNORMAL BEHAVIOUR [None]
  - ARTHRALGIA [None]
  - CYSTITIS [None]
  - EXOSTOSIS [None]
  - EYELID OEDEMA [None]
  - HYPOTHYROIDISM [None]
  - INSOMNIA [None]
  - MIGRAINE [None]
  - MYALGIA [None]
  - PLATELET COUNT DECREASED [None]
  - RASH [None]
  - RED BLOOD CELL COUNT DECREASED [None]
  - THYROIDITIS [None]
  - WHITE BLOOD CELL COUNT DECREASED [None]
